FAERS Safety Report 4761563-X (Version None)
Quarter: 2005Q3

REPORT INFORMATION
  Report Type: 
  Country: None (occurrence: None)
  Receive Date: 20050906
  Receipt Date: 20050829
  Transmission Date: 20060218
  Serious: Yes (Hospitalization, Other)
  Sender: FDA-Public Use
  Company Number: PHBS2005ZA12532

PATIENT
  Age: 40 Year
  Sex: Female
  Weight: 60 kg

DRUGS (2)
  1. ZELNORM [Suspect]
     Indication: IRRITABLE BOWEL SYNDROME
     Dosage: 6 MG, UNK
     Route: 048
     Dates: start: 20050819, end: 20050820
  2. ZELNORM [Suspect]
     Dosage: 6 MG, QD
     Route: 048
     Dates: start: 20050820, end: 20050821

REACTIONS (5)
  - DERMATITIS ALLERGIC [None]
  - DIARRHOEA [None]
  - EYELID OEDEMA [None]
  - PERIORBITAL OEDEMA [None]
  - PRURITUS [None]
